FAERS Safety Report 8836330 (Version 2)
Quarter: 2012Q4

REPORT INFORMATION
  Report Type: 
  Country: US (occurrence: US)
  Receive Date: 20121011
  Receipt Date: 20121113
  Transmission Date: 20130627
  Serious: No
  Sender: FDA-Public Use
  Company Number: US-ASTRAZENECA-2012SE76057

PATIENT
  Age: 58 Year
  Sex: Female

DRUGS (1)
  1. SYMBICORT PMDI [Suspect]
     Indication: ASTHMA
     Dosage: 160/4.5 MCG, TWO TIMES A DAY
     Route: 055

REACTIONS (14)
  - Asthma [Unknown]
  - Multiple allergies [Unknown]
  - Sinus headache [Unknown]
  - Upper-airway cough syndrome [Unknown]
  - Somnolence [Unknown]
  - Hypopnoea [Unknown]
  - Impaired work ability [Unknown]
  - Chest discomfort [Unknown]
  - Feeling abnormal [Unknown]
  - Activities of daily living impaired [Unknown]
  - Vertigo [Unknown]
  - Migraine [Unknown]
  - Sleep disorder due to general medical condition, insomnia type [Unknown]
  - Nervousness [Unknown]
